FAERS Safety Report 9387671 (Version 1)
Quarter: 2013Q3

REPORT INFORMATION
  Report Type: Spontaneous
  Country: DE (occurrence: None)
  Receive Date: 20130703
  Receipt Date: 20130703
  Transmission Date: 20140515
  Serious: Yes (Congenital Anomaly, Other)
  Sender: FDA-Public Use
  Company Number: AUR-APL-2013-05478

PATIENT
  Sex: Male
  Weight: 3.22 kg

DRUGS (2)
  1. MIRTAZAPINE [Suspect]
     Indication: ANXIETY DISORDER
     Route: 064
  2. TAVOR (LORAZEPAM) [Concomitant]

REACTIONS (2)
  - Maternal drugs affecting foetus [None]
  - Pyloric stenosis [None]
